FAERS Safety Report 8507375-2 (Version None)
Quarter: 2012Q3

REPORT INFORMATION
  Report Type: 
  Country: None (occurrence: None)
  Receive Date: 20120712
  Receipt Date: 20120706
  Transmission Date: 20120928
  Serious: Yes (Other)
  Sender: FDA-Public Use
  Company Number: GB-ABBOTT-12P-167-0928572-00

PATIENT
  Age: 80 Year
  Sex: Female

DRUGS (10)
  1. BISOPROLOL FUMARATE [Concomitant]
     Indication: PRODUCT USED FOR UNKNOWN INDICATION
  2. EPILIM EC [Suspect]
     Route: 048
  3. EPILIM EC [Suspect]
     Indication: EPILEPSY
     Route: 048
     Dates: start: 20120412
  4. CLOPIDOGREL [Concomitant]
     Indication: PRODUCT USED FOR UNKNOWN INDICATION
  5. SIMVASTATIN [Concomitant]
     Indication: PRODUCT USED FOR UNKNOWN INDICATION
  6. CITALOPRAM HYDROBROMIDE [Concomitant]
     Indication: PRODUCT USED FOR UNKNOWN INDICATION
  7. CLOZARIL [Suspect]
  8. INSULIN [Concomitant]
     Indication: PRODUCT USED FOR UNKNOWN INDICATION
  9. RAMIPRIL [Concomitant]
     Indication: PRODUCT USED FOR UNKNOWN INDICATION
  10. CLARITHROMYCIN [Concomitant]
     Indication: PRODUCT USED FOR UNKNOWN INDICATION

REACTIONS (7)
  - LOSS OF CONSCIOUSNESS [None]
  - STARING [None]
  - UNRESPONSIVE TO STIMULI [None]
  - SPEECH DISORDER [None]
  - TIC [None]
  - CONFUSIONAL STATE [None]
  - ABNORMAL BEHAVIOUR [None]
